FAERS Safety Report 16653958 (Version 1)
Quarter: 2019Q3

REPORT INFORMATION
  Report Type: Spontaneous
  Country: US (occurrence: US)
  Receive Date: 20190731
  Receipt Date: 20190731
  Transmission Date: 20191004
  Serious: Yes (Other)
  Sender: FDA-Public Use
  Company Number: US-SHIRE-US201924360

PATIENT
  Age: 72 Year
  Sex: Male

DRUGS (19)
  1. FEIBA NF [Suspect]
     Active Substance: ANTI-INHIBITOR COAGULANT COMPLEX
     Indication: PROPHYLAXIS
     Dosage: 75 INTERNATIONAL UNIT/KILOGRAM
     Route: 065
  2. BIVALIRUDIN. [Concomitant]
     Active Substance: BIVALIRUDIN
     Indication: ANTICOAGULANT THERAPY
  3. HUMAN NORMAL IMMUNOGLOBULIN [Concomitant]
     Active Substance: HUMAN IMMUNOGLOBULIN G
     Indication: PRODUCT USED FOR UNKNOWN INDICATION
  4. AZATHIOPRINE. [Concomitant]
     Active Substance: AZATHIOPRINE
     Indication: ACQUIRED HAEMOPHILIA
  5. BORTEZOMIB. [Concomitant]
     Active Substance: BORTEZOMIB
     Indication: ACQUIRED HAEMOPHILIA
  6. FEIBA NF [Suspect]
     Active Substance: ANTI-INHIBITOR COAGULANT COMPLEX
     Indication: ACQUIRED HAEMOPHILIA
     Dosage: 50 INTERNATIONAL UNIT/KILOGRAM, 3X A WEEK
     Route: 065
  7. OBIZUR [Concomitant]
     Active Substance: ANTIHEMOPHILIC FACTOR PORCINE, B-DOMAIN TRUNCATED RECOMBINANT
     Indication: PERCUTANEOUS CORONARY INTERVENTION
  8. CYCLOPHOSPHAMIDE. [Concomitant]
     Active Substance: CYCLOPHOSPHAMIDE
     Indication: ACQUIRED HAEMOPHILIA
  9. CYCLOSPORINE. [Concomitant]
     Active Substance: CYCLOSPORINE
     Indication: ACQUIRED HAEMOPHILIA
  10. TACROLIMUS. [Concomitant]
     Active Substance: TACROLIMUS
     Indication: ACQUIRED HAEMOPHILIA
  11. RITUXIMAB. [Concomitant]
     Active Substance: RITUXIMAB
     Indication: ACQUIRED HAEMOPHILIA
  12. MYCOPHENOLATE [Concomitant]
     Active Substance: MYCOPHENOLIC ACID
     Indication: ACQUIRED HAEMOPHILIA
  13. FEIBA NF [Suspect]
     Active Substance: ANTI-INHIBITOR COAGULANT COMPLEX
     Dosage: 75 INTERNATIONAL UNIT/KILOGRAM
     Route: 065
  14. OBIZUR [Concomitant]
     Active Substance: ANTIHEMOPHILIC FACTOR PORCINE, B-DOMAIN TRUNCATED RECOMBINANT
     Indication: ACQUIRED HAEMOPHILIA
  15. HEMLIBRA [Concomitant]
     Active Substance: EMICIZUMAB-KXWH
     Indication: ACQUIRED HAEMOPHILIA
  16. ASPIRIN (E.C.) [Concomitant]
     Active Substance: ASPIRIN
     Indication: PRODUCT USED FOR UNKNOWN INDICATION
  17. FEIBA NF [Suspect]
     Active Substance: ANTI-INHIBITOR COAGULANT COMPLEX
     Dosage: 50 INTERNATIONAL UNIT/KILOGRAM, 2X/DAY:BID
     Route: 065
  18. CLADRIBINE. [Concomitant]
     Active Substance: CLADRIBINE
     Indication: ACQUIRED HAEMOPHILIA
  19. CLOPIDOGREL [Concomitant]
     Active Substance: CLOPIDOGREL BISULFATE
     Indication: PRODUCT USED FOR UNKNOWN INDICATION

REACTIONS (1)
  - Drug ineffective [Unknown]
